FAERS Safety Report 14553855 (Version 1)
Quarter: 2018Q1

REPORT INFORMATION
  Report Type: Spontaneous
  Country: FR (occurrence: FR)
  Receive Date: 20180220
  Receipt Date: 20180220
  Transmission Date: 20180509
  Serious: Yes (Hospitalization)
  Sender: FDA-Public Use
  Company Number: FR-SA-2018SA029676

PATIENT
  Age: 62 Year
  Sex: Male

DRUGS (6)
  1. RASBURICASE [Suspect]
     Active Substance: RASBURICASE
     Indication: LEUKAEMIA
     Route: 065
  2. PENTOSTATIN. [Concomitant]
     Active Substance: PENTOSTATIN
     Indication: LEUKAEMIA
     Route: 065
  3. RASBURICASE [Suspect]
     Active Substance: RASBURICASE
     Indication: LEUKAEMIA
     Dosage: DRUG PROVOCATION TEST
     Route: 065
  4. RASBURICASE [Suspect]
     Active Substance: RASBURICASE
     Indication: DRUG PROVOCATION TEST
     Dosage: DRUG PROVOCATION TEST
     Route: 065
  5. RASBURICASE [Suspect]
     Active Substance: RASBURICASE
     Indication: DRUG PROVOCATION TEST
     Route: 065
  6. ALLOPURINOL. [Concomitant]
     Active Substance: ALLOPURINOL
     Indication: LEUKAEMIA
     Route: 065

REACTIONS (9)
  - Cell-mediated cytotoxicity [Recovered/Resolved]
  - Type II hypersensitivity [Unknown]
  - Cytopenia [Recovered/Resolved]
  - Sepsis [Recovering/Resolving]
  - Pyrexia [Unknown]
  - Tachycardia [Unknown]
  - Thrombocytopenia [Recovered/Resolved]
  - Lymphopenia [Recovered/Resolved]
  - Hepatic failure [Unknown]
